FAERS Safety Report 23047685 (Version 3)
Quarter: 2023Q4

REPORT INFORMATION
  Report Type: Other
  Country: US (occurrence: None)
  Receive Date: 20231010
  Receipt Date: 20231025
  Transmission Date: 20240109
  Serious: Yes (Hospitalization)
  Sender: FDA-Public Use
  Company Number: US-ROCHE-3429498

PATIENT
  Age: 62 Year
  Sex: Female
  Weight: 45.854 kg

DRUGS (5)
  1. OCREVUS [Suspect]
     Active Substance: OCRELIZUMAB
     Indication: Relapsing-remitting multiple sclerosis
     Dosage: INFUSE 300MG DAY 1 AND INFUSE?MOST RECENT OCREVUS INFUSION WAS IN AUG/2023
     Route: 042
  2. MORPHINE [Concomitant]
     Active Substance: MORPHINE
     Indication: Pain
     Route: 048
  3. LORAZEPAM [Concomitant]
     Active Substance: LORAZEPAM
     Indication: Anxiety
     Route: 048
  4. SOMA [Concomitant]
     Active Substance: CARISOPRODOL
     Indication: Muscle spasms
     Route: 048
     Dates: start: 2012
  5. VENLAFAXINE [Concomitant]
     Active Substance: VENLAFAXINE HYDROCHLORIDE
     Indication: Depression
     Route: 048
     Dates: start: 2012

REACTIONS (15)
  - Colitis [Recovered/Resolved]
  - Systemic inflammatory response syndrome [Unknown]
  - Clostridium difficile infection [Recovered/Resolved]
  - Pain [Not Recovered/Not Resolved]
  - Swelling [Recovered/Resolved]
  - Urinary tract infection [Recovered/Resolved]
  - Pyrexia [Recovered/Resolved]
  - Throat irritation [Not Recovered/Not Resolved]
  - Pneumothorax [Recovered/Resolved]
  - Myalgia [Unknown]
  - Musculoskeletal pain [Unknown]
  - Flank pain [Unknown]
  - Gait inability [Unknown]
  - Back pain [Unknown]
  - Chest pain [Unknown]

NARRATIVE: CASE EVENT DATE: 20230101
